FAERS Safety Report 17897355 (Version 1)
Quarter: 2020Q2

REPORT INFORMATION
  Report Type: Spontaneous
  Country: US (occurrence: US)
  Receive Date: 20200615
  Receipt Date: 20200615
  Transmission Date: 20200714
  Serious: Yes (Other)
  Sender: FDA-Public Use
  Company Number: US-IMPRIMIS NJOF-2085864

PATIENT

DRUGS (1)
  1. MOXIFLOXACIN 5 MG/ML [Suspect]
     Active Substance: MOXIFLOXACIN
     Route: 031

REACTIONS (2)
  - Ischaemia [None]
  - Corneal oedema [None]
